FAERS Safety Report 9201422 (Version 3)
Quarter: 2013Q4

REPORT INFORMATION
  Report Type: Report from Study
  Country: DE (occurrence: DE)
  Receive Date: 20130401
  Receipt Date: 20131218
  Transmission Date: 20140711
  Serious: Yes (Other)
  Sender: FDA-Public Use
  Company Number: DE-ASTELLAS-2013US003426

PATIENT
  Age: 78 Year
  Sex: Female

DRUGS (6)
  1. ERLOTINIB TABLET [Suspect]
     Indication: NON-SMALL CELL LUNG CANCER
     Dosage: 150 MG, UID/QD
     Route: 065
     Dates: start: 20130122, end: 20130305
  2. ERLOTINIB TABLET [Suspect]
     Dosage: 50 MG, UID/QD
     Route: 048
     Dates: start: 20130325
  3. AGGRENOX [Concomitant]
     Indication: CEREBROVASCULAR ACCIDENT
     Dosage: UNK
     Route: 048
  4. NIFEDIPIN [Concomitant]
     Indication: HYPERTENSION
     Dosage: 40 MG, UNKNOWN/D
     Route: 048
  5. SIMVASTATIN [Concomitant]
     Indication: LIPID METABOLISM DISORDER
     Dosage: 40 MG, UNKNOWN/D
     Route: 048
  6. SPIRIVA [Concomitant]
     Indication: CHRONIC OBSTRUCTIVE PULMONARY DISEASE
     Dosage: 18 PG, UID/QD
     Route: 065

REACTIONS (2)
  - Iridocyclitis [Recovered/Resolved]
  - Iritis [Recovered/Resolved]
